FAERS Safety Report 22154960 (Version 1)
Quarter: 2023Q1

REPORT INFORMATION
  Report Type: Spontaneous
  Country: US (occurrence: US)
  Receive Date: 20230330
  Receipt Date: 20230330
  Transmission Date: 20230418
  Serious: No
  Sender: FDA-Public Use
  Company Number: US-BRISTOL-MYERS SQUIBB COMPANY-2023-045120

PATIENT
  Age: 82 Year
  Sex: Male
  Weight: 72.12 kg

DRUGS (1)
  1. POMALYST [Suspect]
     Active Substance: POMALIDOMIDE
     Indication: Plasma cell myeloma
     Dosage: FREQUENCY: TAKE 1 CAPSULE BY MOUTH FOR 7 DAYS ON, THEN 7 DAYS OFF, REPEAT.
     Route: 048
     Dates: start: 20221228

REACTIONS (3)
  - Diarrhoea [Recovered/Resolved]
  - Product prescribing issue [Unknown]
  - Off label use [Unknown]
